FAERS Safety Report 20635933 (Version 1)
Quarter: 2022Q1

REPORT INFORMATION
  Report Type: Spontaneous
  Country: US (occurrence: US)
  Receive Date: 20220325
  Receipt Date: 20220325
  Transmission Date: 20220423
  Serious: No
  Sender: FDA-Public Use
  Company Number: US-ORGANON-O2203USA002071

PATIENT
  Sex: Male

DRUGS (2)
  1. CLARINEX [Suspect]
     Active Substance: DESLORATADINE
     Indication: Hypersensitivity
     Dosage: 5 MG/ONCE PER DAY
     Route: 048
     Dates: start: 202103, end: 2021
  2. CLARINEX [Suspect]
     Active Substance: DESLORATADINE
     Dosage: 5 MG/ONCE PER DAY
     Route: 048
     Dates: start: 20220314

REACTIONS (4)
  - Intrusive thoughts [Recovered/Resolved]
  - Anxiety [Recovered/Resolved]
  - Intrusive thoughts [Unknown]
  - Anxiety [Unknown]

NARRATIVE: CASE EVENT DATE: 20210101
